FAERS Safety Report 6075103-9 (Version None)
Quarter: 2009Q1

REPORT INFORMATION
  Report Type: 
  Country: None (occurrence: None)
  Receive Date: 20090210
  Receipt Date: 20090210
  Transmission Date: 20090719
  Serious: Yes (Hospitalization)
  Sender: FDA-Public Use
  Company Number: None

PATIENT
  Age: 84 Year
  Sex: Male
  Weight: 89.9 kg

DRUGS (1)
  1. BACLOFEN [Suspect]
     Indication: MUSCLE RELAXANT THERAPY
     Dosage: 10 MG TID PO
     Route: 048
     Dates: start: 20090127, end: 20090203

REACTIONS (1)
  - MENTAL STATUS CHANGES [None]
